FAERS Safety Report 6780971-9 (Version None)
Quarter: 2010Q2

REPORT INFORMATION
  Report Type: 
  Country: None (occurrence: None)
  Receive Date: 20100621
  Receipt Date: 20100607
  Transmission Date: 20101027
  Serious: Yes (Hospitalization)
  Sender: FDA-Public Use
  Company Number: FR-ELI_LILLY_AND_COMPANY-FR201004003839

PATIENT
  Sex: Male
  Weight: 59 kg

DRUGS (3)
  1. FORTEO [Suspect]
     Indication: OSTEOPOROSIS
     Dosage: 20 UG, DAILY (1/D)
     Route: 058
     Dates: start: 20091219
  2. PLAVIX [Concomitant]
     Indication: ARTERITIS
     Dosage: 1 D/F, DAILY (1/D)
     Route: 048
  3. KARDEGIC [Concomitant]
     Indication: ARTERITIS
     Dosage: 75 MG, DAILY (1/D)
     Route: 048

REACTIONS (4)
  - ALCOHOL POISONING [None]
  - BALANCE DISORDER [None]
  - FALL [None]
  - HAND FRACTURE [None]
